FAERS Safety Report 14297682 (Version 1)
Quarter: 2017Q4

REPORT INFORMATION
  Report Type: Spontaneous
  Country: US (occurrence: US)
  Receive Date: 20171218
  Receipt Date: 20171218
  Transmission Date: 20180321
  Serious: No
  Sender: FDA-Public Use
  Company Number: US-TEIKOKU PHARMA USA-TPU2017-00726

PATIENT
  Sex: Female
  Weight: 69.46 kg

DRUGS (7)
  1. DILAUDID [Suspect]
     Active Substance: HYDROMORPHONE HYDROCHLORIDE
     Indication: FRACTURE PAIN
  2. HYDROCODONE [Suspect]
     Active Substance: HYDROCODONE
     Indication: FRACTURE PAIN
  3. PREVACID [Concomitant]
     Active Substance: LANSOPRAZOLE
  4. LIDOCAINE PATCH [Suspect]
     Active Substance: LIDOCAINE
     Indication: ARTHRITIS
     Dosage: UP TO 3 PATCHES APPLIED TO KNEE, HIP AND BACK FOR 12 HOURS
     Route: 061
  5. OXYCODONE [Suspect]
     Active Substance: OXYCODONE
     Indication: FRACTURE PAIN
  6. LIDOCAINE PATCH [Suspect]
     Active Substance: LIDOCAINE
     Dosage: APPROXIMATELY 10 YEARS AGO WHEN HER BOYFRIEND WAS PRESCRIBED LIDOCAINE PATCHES AND PATIENT USED ONE
  7. LORITIDINE [Concomitant]

REACTIONS (3)
  - Headache [Unknown]
  - Arthritis [Unknown]
  - Upper limb fracture [Unknown]
